FAERS Safety Report 4665392-7 (Version None)
Quarter: 2005Q2

REPORT INFORMATION
  Report Type: 
  Country: None (occurrence: None)
  Receive Date: 20050518
  Receipt Date: 20050518
  Transmission Date: 20051028
  Serious: Yes (Life-Threatening, Hospitalization)
  Sender: FDA-Public Use
  Company Number: None

PATIENT
  Age: 65 Year
  Sex: Female

DRUGS (1)
  1. PROMETHAZINE [Suspect]
     Dosage: 25 MG IV ONCE
     Route: 042
     Dates: start: 20050506

REACTIONS (3)
  - AGITATION [None]
  - RESPIRATORY DISTRESS [None]
  - SWOLLEN TONGUE [None]
